FAERS Safety Report 11113709 (Version 3)
Quarter: 2016Q3

REPORT INFORMATION
  Report Type: Spontaneous
  Country: US (occurrence: US)
  Receive Date: 20150514
  Receipt Date: 20160719
  Transmission Date: 20161109
  Serious: No
  Sender: FDA-Public Use
  Company Number: US-LUNDBECK-DKLU1110825

PATIENT
  Sex: Female

DRUGS (3)
  1. NORTHERA [Suspect]
     Active Substance: DROXIDOPA
     Indication: DIZZINESS
     Route: 065
     Dates: start: 201412
  2. NORTHERA [Suspect]
     Active Substance: DROXIDOPA
     Route: 065
     Dates: start: 201412
  3. NORTHERA [Suspect]
     Active Substance: DROXIDOPA
     Indication: CARDIOVASCULAR DISORDER
     Route: 048
     Dates: start: 201412

REACTIONS (2)
  - Hypotension [Not Recovered/Not Resolved]
  - Gastroenteritis viral [Recovered/Resolved]
